FAERS Safety Report 14120988 (Version 1)
Quarter: 2017Q4

REPORT INFORMATION
  Report Type: Spontaneous
  Country: US (occurrence: US)
  Receive Date: 20171024
  Receipt Date: 20171024
  Transmission Date: 20180321
  Serious: No
  Sender: FDA-Public Use
  Company Number: US-ASTRAZENECA-2017SF07470

PATIENT
  Sex: Female
  Weight: 81.6 kg

DRUGS (2)
  1. MOVANTIK [Suspect]
     Active Substance: NALOXEGOL OXALATE
     Indication: CONSTIPATION
     Route: 048
  2. OMEPRAZOLE. [Suspect]
     Active Substance: OMEPRAZOLE
     Indication: ABDOMINAL DISCOMFORT
     Route: 048

REACTIONS (12)
  - Sciatica [Unknown]
  - Spinal column stenosis [Unknown]
  - Back pain [Unknown]
  - Infrequent bowel movements [Not Recovered/Not Resolved]
  - Weight fluctuation [Unknown]
  - Memory impairment [Unknown]
  - Musculoskeletal pain [Unknown]
  - Headache [Unknown]
  - Musculoskeletal discomfort [Unknown]
  - Head discomfort [Unknown]
  - Mobility decreased [Unknown]
  - Neck pain [Unknown]
